FAERS Safety Report 16074435 (Version 2)
Quarter: 2019Q1

REPORT INFORMATION
  Report Type: Spontaneous
  Country: US (occurrence: US)
  Receive Date: 20190314
  Receipt Date: 20190318
  Transmission Date: 20190418
  Serious: Yes (Hospitalization)
  Sender: FDA-Public Use
  Company Number: US-CELGENEUS-USA-20190303142

PATIENT
  Age: 84 Year
  Sex: Male

DRUGS (7)
  1. IPRATROPIUM/ALBUTEROL [Concomitant]
     Active Substance: ALBUTEROL\IPRATROPIUM
     Indication: DYSPNOEA
     Dosage: 18 MILLILITER
     Route: 065
     Dates: start: 20190224
  2. AZACITIDINE. [Suspect]
     Active Substance: AZACITIDINE
     Indication: PRODUCT USED FOR UNKNOWN INDICATION
     Dosage: 66.75 MILLIGRAM
     Route: 058
     Dates: start: 20170911, end: 20180306
  3. NIVOLUMAB [Suspect]
     Active Substance: NIVOLUMAB
     Indication: PRODUCT USED FOR UNKNOWN INDICATION
     Dosage: 240 MILLIGRAM
     Route: 041
     Dates: start: 20170911, end: 20190212
  4. ENTINOSTAT [Suspect]
     Active Substance: ENTINOSTAT
     Indication: PRODUCT USED FOR UNKNOWN INDICATION
     Dosage: 5 MILLIGRAM
     Route: 048
     Dates: start: 20170911, end: 20180306
  5. AZITHROMYCIN ANHYDROUS. [Concomitant]
     Active Substance: AZITHROMYCIN ANHYDROUS
     Indication: INFECTION
     Dosage: 500 MILLIGRAM
     Route: 048
     Dates: start: 20190224
  6. PREDNISONE. [Concomitant]
     Active Substance: PREDNISONE
     Indication: CHRONIC OBSTRUCTIVE PULMONARY DISEASE
     Dosage: 60 MILLIGRAM
     Route: 048
     Dates: start: 20190224
  7. ALBUTEROL. [Concomitant]
     Active Substance: ALBUTEROL
     Indication: OXYGEN SATURATION DECREASED
     Route: 065

REACTIONS (2)
  - Chronic obstructive pulmonary disease [Not Recovered/Not Resolved]
  - Respiratory syncytial virus infection [Unknown]

NARRATIVE: CASE EVENT DATE: 20190224
